FAERS Safety Report 21734256 (Version 3)
Quarter: 2022Q4

REPORT INFORMATION
  Report Type: Report from Study
  Country: US (occurrence: US)
  Receive Date: 20221215
  Receipt Date: 20221229
  Transmission Date: 20230113
  Serious: No
  Sender: FDA-Public Use
  Company Number: US-ABBVIE-4229645

PATIENT
  Sex: Male

DRUGS (3)
  1. RINVOQ [Suspect]
     Active Substance: UPADACITINIB
     Indication: Colitis ulcerative
     Dosage: FORM STRENGTH 15 MG
     Route: 048
  2. RINVOQ [Suspect]
     Active Substance: UPADACITINIB
     Indication: Colitis ulcerative
     Route: 048
  3. MODERNA COVID-19 VACCINE [Concomitant]
     Active Substance: ELASOMERAN
     Indication: COVID-19 immunisation
     Dosage: ONE IN ONCE
     Route: 030

REACTIONS (11)
  - Secretion discharge [Unknown]
  - Productive cough [Unknown]
  - Rash [Unknown]
  - Cough [Not Recovered/Not Resolved]
  - Acne [Unknown]
  - Skin discolouration [Unknown]
  - Scab [Unknown]
  - Ingrown hair [Recovering/Resolving]
  - Pruritus [Unknown]
  - Headache [Unknown]
  - Furuncle [Not Recovered/Not Resolved]

NARRATIVE: CASE EVENT DATE: 20220101
